FAERS Safety Report 7933270-3 (Version None)
Quarter: 2011Q4

REPORT INFORMATION
  Report Type: 
  Country: None (occurrence: None)
  Receive Date: 20111121
  Receipt Date: 20111121
  Transmission Date: 20120403
  Serious: Yes (Hospitalization)
  Sender: FDA-Public Use
  Company Number: None

PATIENT
  Sex: Female
  Weight: 7.2576 kg

DRUGS (1)
  1. DEPAKOTE [Suspect]
     Indication: SCHIZOPHRENIA
     Dosage: 500 MG TWICE A DAY MOUTH
     Route: 048

REACTIONS (6)
  - WEIGHT INCREASED [None]
  - TREMOR [None]
  - HEADACHE [None]
  - RASH [None]
  - CONTUSION [None]
  - VISION BLURRED [None]
